FAERS Safety Report 12770876 (Version 1)
Quarter: 2016Q3

REPORT INFORMATION
  Report Type: Spontaneous
  Country: US (occurrence: US)
  Receive Date: 20160921
  Receipt Date: 20160921
  Transmission Date: 20161109
  Serious: Yes (Disabling)
  Sender: FDA-Public Use
  Company Number: None

PATIENT
  Age: 62 Year
  Sex: Male
  Weight: 74.25 kg

DRUGS (2)
  1. HYOSCAMINE 0.125 MG SUBLINGUAL [Suspect]
     Active Substance: HYOSCYAMINE
     Indication: GASTROINTESTINAL DISORDER
     Route: 060
     Dates: start: 20160408, end: 20160909
  2. DAILY MULTI VITAMIN [Concomitant]

REACTIONS (5)
  - Lethargy [None]
  - Feeling abnormal [None]
  - Product use issue [None]
  - Dizziness [None]
  - Disorientation [None]

NARRATIVE: CASE EVENT DATE: 20160913
